FAERS Safety Report 12156011 (Version 2)
Quarter: 2016Q1

REPORT INFORMATION
  Report Type: Report from Study
  Country: MX (occurrence: MX)
  Receive Date: 20160307
  Receipt Date: 20160321
  Transmission Date: 20160526
  Serious: Yes (Other)
  Sender: FDA-Public Use
  Company Number: PHHY2016MX028253

PATIENT
  Age: 59 Year
  Sex: Female

DRUGS (3)
  1. VONTROL [Concomitant]
     Active Substance: DIPHENIDOL HYDROCHLORIDE
     Indication: PRODUCT USED FOR UNKNOWN INDICATION
     Dosage: 2 DF, UNK
     Route: 065
  2. EXFORGE [Suspect]
     Active Substance: AMLODIPINE BESYLATE\VALSARTAN
     Indication: BLOOD PRESSURE INCREASED
     Dosage: 1 DF, QD (AMLODIPINE 5 MG, VALSARTAN 160 MG)
     Route: 065
     Dates: start: 20160223
  3. DICLOFENAC [Concomitant]
     Active Substance: DICLOFENAC
     Indication: PAIN IN EXTREMITY
     Route: 065

REACTIONS (1)
  - Typhoid fever [Not Recovered/Not Resolved]

NARRATIVE: CASE EVENT DATE: 20160225
